FAERS Safety Report 6148667-4 (Version None)
Quarter: 2009Q2

REPORT INFORMATION
  Report Type: 
  Country: None (occurrence: None)
  Receive Date: 20090408
  Receipt Date: 20090403
  Transmission Date: 20091009
  Serious: Yes (Other)
  Sender: FDA-Public Use
  Company Number: US-BAXTER-2009BH005200

PATIENT
  Age: 14 Month
  Sex: Female
  Weight: 9 kg

DRUGS (2)
  1. GENTAMICIN [Suspect]
     Indication: DRUG USE FOR UNKNOWN INDICATION
     Route: 042
  2. CEFAZOLIN AND DEXTROSE [Concomitant]
     Route: 042

REACTIONS (2)
  - MEDICATION ERROR [None]
  - OVERDOSE [None]
